FAERS Safety Report 13062461 (Version 1)
Quarter: 2016Q4

REPORT INFORMATION
  Report Type: Spontaneous
  Country: US (occurrence: US)
  Receive Date: 20161226
  Receipt Date: 20161226
  Transmission Date: 20170207
  Serious: No
  Sender: FDA-Public Use
  Company Number: US-009507513-1612USA010946

PATIENT
  Age: 26 Year
  Sex: Female
  Weight: 75.74 kg

DRUGS (1)
  1. NEXPLANON [Suspect]
     Active Substance: ETONOGESTREL
     Indication: CONTRACEPTION
     Dosage: 3 YEAR IMPLANT / LEFT ARM IMPLANT
     Route: 059
     Dates: start: 20150818

REACTIONS (1)
  - Polymenorrhoea [Unknown]

NARRATIVE: CASE EVENT DATE: 201611
